FAERS Safety Report 10335647 (Version 1)
Quarter: 2014Q3

REPORT INFORMATION
  Report Type: Spontaneous
  Country: US (occurrence: US)
  Receive Date: 20140723
  Receipt Date: 20140723
  Transmission Date: 20150326
  Serious: Yes (Death)
  Sender: FDA-Public Use
  Company Number: US-SA-2014SA095846

PATIENT
  Age: 75 Year
  Sex: Female

DRUGS (1)
  1. THYROGEN [Suspect]
     Active Substance: THYROTROPIN ALFA
     Indication: PRODUCT USED FOR UNKNOWN INDICATION
     Dosage: FREQUENCY: EVERY 24 HOURS FOR 2 DOSES
     Route: 030
     Dates: start: 20110120

REACTIONS (1)
  - Death [Fatal]

NARRATIVE: CASE EVENT DATE: 20111221
